FAERS Safety Report 7544563-6 (Version None)
Quarter: 2011Q2

REPORT INFORMATION
  Report Type: 
  Country: None (occurrence: None)
  Receive Date: 20110613
  Receipt Date: 20110608
  Transmission Date: 20111010
  Serious: Yes (Hospitalization, Other)
  Sender: FDA-Public Use
  Company Number: AU-BRISTOL-MYERS SQUIBB COMPANY-15525975

PATIENT
  Age: 50 Year
  Sex: Male
  Weight: 88 kg

DRUGS (2)
  1. ORENCIA [Suspect]
     Indication: RHEUMATOID ARTHRITIS
     Dosage: TOTAL INFUSIONS: 12 LAST DOSE ON 01-FEB-2011
     Dates: start: 20100401
  2. SODIUM CHLORIDE [Concomitant]

REACTIONS (9)
  - BLOOD PRESSURE INCREASED [None]
  - LETHARGY [None]
  - HEADACHE [None]
  - TRANSIENT ISCHAEMIC ATTACK [None]
  - MIOSIS [None]
  - JOINT STIFFNESS [None]
  - OEDEMA PERIPHERAL [None]
  - PRESYNCOPE [None]
  - PARAESTHESIA [None]
